FAERS Safety Report 12424570 (Version 1)
Quarter: 2016Q2

REPORT INFORMATION
  Report Type: Spontaneous
  Country: US (occurrence: None)
  Receive Date: 20160531
  Receipt Date: 20160531
  Transmission Date: 20160815
  Serious: Yes (Hospitalization)
  Sender: FDA-Public Use
  Company Number: None

PATIENT
  Age: 54 Year
  Sex: Female
  Weight: 81.6 kg

DRUGS (1)
  1. FERRLECIT [Suspect]
     Active Substance: SODIUM FERRIC GLUCONATE COMPLEX
     Indication: IRON DEFICIENCY ANAEMIA
     Dosage: 250 MG X 3 DOSES (MWF) INTRAVENOUS BOLUS
     Route: 040
     Dates: start: 20160523, end: 20160527

REACTIONS (1)
  - Infusion site urticaria [None]

NARRATIVE: CASE EVENT DATE: 20160527
